FAERS Safety Report 14138162 (Version 1)
Quarter: 2017Q4

REPORT INFORMATION
  Report Type: Spontaneous
  Country: US (occurrence: US)
  Receive Date: 20171027
  Receipt Date: 20171027
  Transmission Date: 20180321
  Serious: No
  Sender: FDA-Public Use
  Company Number: US-MIST-TIR-2017-0940

PATIENT
  Age: 77 Year
  Sex: Female
  Weight: 99.88 kg

DRUGS (4)
  1. TIROSINT [Suspect]
     Active Substance: LEVOTHYROXINE SODIUM
     Dosage: TIROSINT 112MCG ON THE DAYS WHEN OUT OF THE HOUSE, LEVOTHYROXINE 112MCG ON DAYS WHEN HOME (EXACT NUM
     Route: 048
  2. LEVOTHYROXINE. [Suspect]
     Active Substance: LEVOTHYROXINE
     Indication: HYPOTHYROIDISM
     Dosage: TIROSINT 112MCG ON THE DAYS WHEN OUT OF THE HOUSE, LEVOTHYROXINE 112 MCG ON DAYS WHEN HOME (EXACT NU
     Route: 048
  3. TIROSINT [Suspect]
     Active Substance: LEVOTHYROXINE SODIUM
     Indication: HYPOTHYROIDISM
     Dosage: ONCE DAILY
     Route: 048
     Dates: start: 201709
  4. LISINOPRIL. [Concomitant]
     Active Substance: LISINOPRIL
     Indication: PRODUCT USED FOR UNKNOWN INDICATION
     Dosage: EVERY NIGHT

REACTIONS (8)
  - Lethargy [Unknown]
  - Diarrhoea [Not Recovered/Not Resolved]
  - Product packaging quantity issue [None]
  - Fatigue [Not Recovered/Not Resolved]
  - Wrong technique in product usage process [Unknown]
  - Inappropriate schedule of drug administration [Unknown]
  - Exercise lack of [Unknown]
  - Product quality issue [Unknown]

NARRATIVE: CASE EVENT DATE: 201709
